FAERS Safety Report 7751062-5 (Version None)
Quarter: 2011Q3

REPORT INFORMATION
  Report Type: 
  Country: None (occurrence: None)
  Receive Date: 20110914
  Receipt Date: 20110510
  Transmission Date: 20111222
  Serious: No
  Sender: FDA-Public Use
  Company Number: US-MYLANLABS-2011S1009944

PATIENT
  Sex: Female

DRUGS (1)
  1. SPIRONOLACTONE [Suspect]

REACTIONS (1)
  - GINGIVAL HYPERPLASIA [None]
